FAERS Safety Report 7783396-2 (Version None)
Quarter: 2011Q3

REPORT INFORMATION
  Report Type: 
  Country: None (occurrence: None)
  Receive Date: 20110928
  Receipt Date: 20110916
  Transmission Date: 20111222
  Serious: Yes (Hospitalization)
  Sender: FDA-Public Use
  Company Number: US-CELGENEUS-163-21660-11092088

PATIENT
  Sex: Female
  Weight: 95.7 kg

DRUGS (18)
  1. ABRAXANE [Suspect]
     Dosage: 80 MICROGRAM/SQ. METER
     Route: 041
     Dates: start: 20110915
  2. SENNA [Concomitant]
     Indication: CONSTIPATION
     Dosage: 1 TABLET
     Route: 048
     Dates: start: 20110617
  3. AVASTIN [Suspect]
     Indication: BREAST CANCER
     Dosage: 430 MILLIGRAM
     Route: 041
     Dates: start: 20110630, end: 20110811
  4. IBUPROFEN [Concomitant]
     Indication: PAIN
     Dosage: 2-3
     Route: 048
     Dates: start: 20110628
  5. ALOXI [Concomitant]
     Indication: NAUSEA
     Dosage: .25 MILLIGRAM
     Route: 041
     Dates: start: 20110613
  6. TYLENOL-500 [Concomitant]
     Indication: HEADACHE
     Dosage: 1000 MILLIGRAM
     Route: 048
     Dates: start: 20110609
  7. HYDROCORTISONE [Concomitant]
     Indication: RASH
     Route: 061
     Dates: start: 20110901
  8. HYDROCORTISONE [Concomitant]
  9. AVAPRO [Concomitant]
     Indication: HYPERTENSION
     Dosage: 300 MILLIGRAM
     Route: 048
     Dates: start: 20110727
  10. NOVOLOG [Concomitant]
     Dosage: 6 UNITS
     Route: 058
     Dates: start: 20110817
  11. CARBOPLATIN [Suspect]
     Indication: BREAST CANCER
     Dosage: 900 MILLIGRAM
     Route: 041
     Dates: start: 20110630, end: 20110901
  12. LANTUS [Concomitant]
     Dosage: 25 UNITS
     Route: 058
     Dates: start: 20110727
  13. ONDANSETRON [Concomitant]
     Indication: NAUSEA
     Dosage: 8 MILLIGRAM
     Route: 041
     Dates: start: 20110613
  14. ABRAXANE [Suspect]
     Indication: BREAST CANCER
     Dosage: 205 MILLIGRAM
     Route: 041
     Dates: start: 20110613, end: 20110915
  15. COREG [Concomitant]
     Dosage: 25 MILLIGRAM
     Route: 048
     Dates: start: 20020101
  16. DEXAMETHASONE [Concomitant]
     Indication: NAUSEA
     Dosage: 12 MILLIGRAM
     Route: 048
     Dates: start: 20110630
  17. COLACE [Concomitant]
     Indication: CONSTIPATION
     Dosage: 1-4
     Route: 048
     Dates: start: 20110617
  18. METFORMIN HCL [Concomitant]
     Dosage: 1000 MILLIGRAM
     Route: 048
     Dates: start: 20110722

REACTIONS (5)
  - DEHYDRATION [None]
  - DIARRHOEA [None]
  - ANAEMIA [None]
  - DECREASED APPETITE [None]
  - NEUTROPENIA [None]
